FAERS Safety Report 25527743 (Version 1)
Quarter: 2025Q3

REPORT INFORMATION
  Report Type: Report from Study
  Country: PK (occurrence: PK)
  Receive Date: 20250708
  Receipt Date: 20250708
  Transmission Date: 20251020
  Serious: Yes (Death)
  Sender: ROCHE
  Company Number: PK-ROCHE-10000264590

PATIENT
  Age: 73 Year
  Sex: Male
  Weight: 52.5 kg

DRUGS (1)
  1. TECENTRIQ [Suspect]
     Active Substance: ATEZOLIZUMAB
     Indication: Hepatocellular carcinoma
     Dosage: 17 CYCLES
     Route: 042
     Dates: start: 20250213, end: 20250513

REACTIONS (3)
  - Off label use [Unknown]
  - Drug intolerance [Unknown]
  - Disease progression [Fatal]

NARRATIVE: CASE EVENT DATE: 20250603
